FAERS Safety Report 9750173 (Version 2)
Quarter: 2014Q1

REPORT INFORMATION
  Report Type: Spontaneous
  Country: GB (occurrence: GB)
  Receive Date: 20131212
  Receipt Date: 20140228
  Transmission Date: 20141002
  Serious: Yes (Other)
  Sender: FDA-Public Use
  Company Number: PHFR2013GB007124

PATIENT
  Sex: Male

DRUGS (2)
  1. CLOZARIL [Suspect]
     Indication: SCHIZOPHRENIA
     Dosage: UNK
     Route: 048
     Dates: start: 20030714
  2. CLOZARIL [Suspect]
     Dosage: UNK
     Route: 048

REACTIONS (2)
  - Cardiac failure [Unknown]
  - ECG signs of myocardial ischaemia [Unknown]
